FAERS Safety Report 5623302-X (Version None)
Quarter: 2008Q1

REPORT INFORMATION
  Report Type: 
  Country: None (occurrence: None)
  Receive Date: 20080207
  Receipt Date: 20080107
  Transmission Date: 20080703
  Serious: Yes (Death, Hospitalization)
  Sender: FDA-Public Use
  Company Number: PAR_01900_2008

PATIENT
  Age: 27 Year
  Sex: Male

DRUGS (1)
  1. VALPROIC ACID [Suspect]
     Indication: DRUG USE FOR UNKNOWN INDICATION
     Dosage: (DF ORAL)
     Route: 048

REACTIONS (12)
  - AMMONIA INCREASED [None]
  - ANION GAP INCREASED [None]
  - BLOOD PRESSURE DIASTOLIC DECREASED [None]
  - CALCIUM IONISED DECREASED [None]
  - COMPLETED SUICIDE [None]
  - DRUG TOXICITY [None]
  - HYPOTHERMIA [None]
  - HYPOXIA [None]
  - MIOSIS [None]
  - MULTIPLE DRUG OVERDOSE [None]
  - POISONING [None]
  - UNRESPONSIVE TO STIMULI [None]
